FAERS Safety Report 8223646-1 (Version None)
Quarter: 2012Q1

REPORT INFORMATION
  Report Type: 
  Country: None (occurrence: None)
  Receive Date: 20120321
  Receipt Date: 20120309
  Transmission Date: 20120608
  Serious: Yes (Other)
  Sender: FDA-Public Use
  Company Number: US-BAYER-2012-025728

PATIENT
  Sex: Female

DRUGS (1)
  1. YAZ [Suspect]

REACTIONS (9)
  - MUSCLE TWITCHING [None]
  - HEADACHE [None]
  - PAIN [None]
  - OEDEMA PERIPHERAL [None]
  - TENSION HEADACHE [None]
  - QUALITY OF LIFE DECREASED [None]
  - PELVIC VENOUS THROMBOSIS [None]
  - DEEP VEIN THROMBOSIS [None]
  - ERYTHEMA [None]
